FAERS Safety Report 7604281-2 (Version None)
Quarter: 2011Q3

REPORT INFORMATION
  Report Type: 
  Country: None (occurrence: None)
  Receive Date: 20110712
  Receipt Date: 20110707
  Transmission Date: 20111222
  Serious: Yes (Other)
  Sender: FDA-Public Use
  Company Number: US-PFIZER INC-2011154191

PATIENT
  Sex: Female
  Weight: 31.746 kg

DRUGS (2)
  1. GABAPENTIN [Suspect]
     Indication: NEURALGIA
     Dosage: UNK
     Route: 048
     Dates: start: 20070101
  2. NEURONTIN [Suspect]
     Indication: NEURALGIA
     Route: 048

REACTIONS (2)
  - AORTIC VALVE CALCIFICATION [None]
  - RENAL FAILURE [None]
